FAERS Safety Report 21081327 (Version 1)
Quarter: 2022Q3

REPORT INFORMATION
  Report Type: Spontaneous
  Country: ES (occurrence: ES)
  Receive Date: 20220714
  Receipt Date: 20220714
  Transmission Date: 20221027
  Serious: Yes (Other)
  Sender: FDA-Public Use
  Company Number: None

PATIENT
  Age: 49 Year
  Sex: Female

DRUGS (1)
  1. KEVZARA [Suspect]
     Active Substance: SARILUMAB
     Indication: Rheumatoid arthritis
     Dosage: 200 MG/14 DAYS
     Route: 058
     Dates: start: 20200303, end: 20201013

REACTIONS (1)
  - Application site joint infection [Recovered/Resolved]

NARRATIVE: CASE EVENT DATE: 20201013
